FAERS Safety Report 8160547-1 (Version None)
Quarter: 2012Q1

REPORT INFORMATION
  Report Type: 
  Country: None (occurrence: None)
  Receive Date: 20120223
  Receipt Date: 20120208
  Transmission Date: 20120608
  Serious: Yes (Hospitalization)
  Sender: FDA-Public Use
  Company Number: CHPA2012US002948

PATIENT
  Age: 35 Year
  Sex: Female

DRUGS (6)
  1. HYDROCODONE BITARTRATE [Suspect]
     Dosage: 325 MG, UNK
  2. CELEBREX [Concomitant]
     Dosage: UNK, UNK
  3. PROMETHAZINE [Concomitant]
     Dosage: UNK, UNK
  4. TRANSDERM SCOP [Suspect]
     Indication: PROCEDURAL NAUSEA
     Dosage: 1 DF, ONCE/SINGLE
     Route: 062
     Dates: start: 20111209, end: 20111211
  5. OXYCODONE HCL AND ACETAMINOPHEN [Suspect]
     Dosage: 5/325 MG, UNK
  6. METHOCARBAMOL [Concomitant]
     Dosage: UNK, UNK

REACTIONS (7)
  - CONFUSIONAL STATE [None]
  - AGITATION [None]
  - TACHYCARDIA [None]
  - HYPOKALAEMIA [None]
  - HYPERSENSITIVITY [None]
  - HALLUCINATION [None]
  - NORMOCHROMIC NORMOCYTIC ANAEMIA [None]
